FAERS Safety Report 6937643-7 (Version None)
Quarter: 2010Q3

REPORT INFORMATION
  Report Type: 
  Country: None (occurrence: None)
  Receive Date: 20100820
  Receipt Date: 20100820
  Transmission Date: 20110219
  Serious: No
  Sender: FDA-Public Use
  Company Number: None

PATIENT
  Age: 15 Year
  Sex: Female

DRUGS (1)
  1. VANCOMYCIN [Suspect]
     Dosage: 1 GRAM ONCE IV PIGGYBACK
     Route: 042
     Dates: start: 20100815, end: 20100815

REACTIONS (1)
  - DRUG HYPERSENSITIVITY [None]
